FAERS Safety Report 6743133-7 (Version None)
Quarter: 2010Q2

REPORT INFORMATION
  Report Type: 
  Country: None (occurrence: None)
  Receive Date: 20100527
  Receipt Date: 20100514
  Transmission Date: 20101027
  Serious: Yes (Hospitalization)
  Sender: FDA-Public Use
  Company Number: PHHY2010FR22076

PATIENT
  Sex: Female
  Weight: 64 kg

DRUGS (4)
  1. ICL670A ICL+ [Suspect]
     Indication: IRON OVERLOAD
     Dosage: 1500 MG, QD
     Route: 048
     Dates: start: 20070523
  2. ORACILLINE [Concomitant]
     Indication: PROPHYLAXIS
  3. SPECIAFOLDINE [Concomitant]
     Indication: PROPHYLAXIS
  4. HYDREA [Concomitant]
     Indication: PROPHYLAXIS

REACTIONS (2)
  - ABDOMINAL PAIN [None]
  - OVARIAN CYST RUPTURED [None]
